FAERS Safety Report 24208005 (Version 1)
Quarter: 2024Q3

REPORT INFORMATION
  Report Type: Spontaneous
  Country: DE (occurrence: DE)
  Receive Date: 20240814
  Receipt Date: 20240814
  Transmission Date: 20241016
  Serious: Yes (Other)
  Sender: ADC THERAPEUTICS
  Company Number: DE-BIOVITRUM-2024-DE-010799

PATIENT
  Sex: Female

DRUGS (1)
  1. ZYNLONTA [Suspect]
     Active Substance: LONCASTUXIMAB TESIRINE-LPYL
     Indication: Product used for unknown indication

REACTIONS (3)
  - Cytopenia [Unknown]
  - Skin disorder [Unknown]
  - Oedema [Unknown]
